FAERS Safety Report 10179007 (Version 1)
Quarter: 2014Q2

REPORT INFORMATION
  Report Type: Spontaneous
  Country: US (occurrence: None)
  Receive Date: 20140516
  Receipt Date: 20140516
  Transmission Date: 20141212
  Serious: Yes (Other)
  Sender: FDA-Public Use
  Company Number: None

PATIENT
  Sex: 0

DRUGS (1)
  1. LEVOFLOXACIN [Suspect]
     Indication: CHRONIC OBSTRUCTIVE PULMONARY DISEASE
     Dosage: 14 TABS. MOUTH
     Dates: start: 20140325, end: 20140401

REACTIONS (5)
  - Burning sensation [None]
  - Abasia [None]
  - Swelling [None]
  - Pain [None]
  - Tendon pain [None]
